FAERS Safety Report 26036779 (Version 1)
Quarter: 2025Q4

REPORT INFORMATION
  Report Type: Spontaneous
  Country: US (occurrence: US)
  Receive Date: 20251112
  Receipt Date: 20251112
  Transmission Date: 20260118
  Serious: No
  Sender: PARATEK PHARMACEUTICALS
  Company Number: US-PARATEK PHARMACEUTICALS, INC.-2025PTK01190

PATIENT
  Age: 58 Year
  Sex: Female

DRUGS (5)
  1. NUZYRA [Suspect]
     Active Substance: OMADACYCLINE
     Indication: Mycobacterium avium complex infection
     Dosage: UNK
     Dates: start: 2025
  2. AMIKACIN [Suspect]
     Active Substance: AMIKACIN
     Indication: Mycobacterium avium complex infection
     Dosage: LIPOSOME INHALATION SUSPENSION
  3. ARIKAYCE [Suspect]
     Active Substance: AMIKACIN
     Indication: Mycobacterium avium complex infection
     Dosage: UNK
  4. ETHAMBUTOL [Suspect]
     Active Substance: ETHAMBUTOL HYDROCHLORIDE
     Indication: Mycobacterium avium complex infection
     Dosage: UNK
  5. AZITHROMYCIN [Suspect]
     Active Substance: AZITHROMYCIN
     Indication: Mycobacterium avium complex infection
     Dosage: UNK

REACTIONS (8)
  - Malaise [Unknown]
  - Pulmonary congestion [Unknown]
  - Palpitations [Unknown]
  - Cough [Unknown]
  - Abnormal dreams [Unknown]
  - Abdominal discomfort [Unknown]
  - Diarrhoea [Unknown]
  - Off label use [Not Recovered/Not Resolved]

NARRATIVE: CASE EVENT DATE: 20250101
